FAERS Safety Report 16382355 (Version 1)
Quarter: 2019Q2

REPORT INFORMATION
  Report Type: Spontaneous
  Country: US (occurrence: US)
  Receive Date: 20190603
  Receipt Date: 20190603
  Transmission Date: 20190711
  Serious: No
  Sender: FDA-Public Use
  Company Number: US-GALDERMA-US18041365

PATIENT
  Age: 15 Year
  Sex: Male

DRUGS (9)
  1. DOXYCYCLIN [Concomitant]
     Active Substance: DOXYCYCLINE
     Indication: ACNE CYSTIC
  2. RETIN-A [Concomitant]
     Active Substance: TRETINOIN
     Indication: SKIN EXFOLIATION
  3. RETIN-A [Concomitant]
     Active Substance: TRETINOIN
     Indication: ACNE CYSTIC
  4. DOXYCYCLIN [Concomitant]
     Active Substance: DOXYCYCLINE
     Indication: SKIN FRAGILITY
  5. PROACTIV MD DEEP CLEANSING FACE WASH [Concomitant]
     Active Substance: COSMETICS
     Route: 061
     Dates: start: 20180615, end: 20180831
  6. PROACTIV MD ADAPALENE ACNE TREATMENT [Suspect]
     Active Substance: ADAPALENE
     Indication: PRODUCT USED FOR UNKNOWN INDICATION
     Dosage: 0.1%
     Route: 061
     Dates: start: 20180615, end: 20180831
  7. DOXYCYCLIN [Concomitant]
     Active Substance: DOXYCYCLINE
     Indication: SKIN EXFOLIATION
  8. RETIN-A [Concomitant]
     Active Substance: TRETINOIN
     Indication: SKIN FRAGILITY
  9. PROACTIV MD DAILY OIL CONTROL SPF 30 [Suspect]
     Active Substance: AVOBENZONE\OCTISALATE\OCTOCRYLENE
     Indication: PRODUCT USED FOR UNKNOWN INDICATION
     Route: 061
     Dates: start: 20180615, end: 20180831

REACTIONS (3)
  - Skin fragility [Recovering/Resolving]
  - Acne cystic [Recovering/Resolving]
  - Skin exfoliation [Recovering/Resolving]

NARRATIVE: CASE EVENT DATE: 20180820
